FAERS Safety Report 6308857-4 (Version None)
Quarter: 2009Q3

REPORT INFORMATION
  Report Type: 
  Country: None (occurrence: None)
  Receive Date: 20090813
  Receipt Date: 20081209
  Transmission Date: 20100115
  Serious: No
  Sender: FDA-Public Use
  Company Number: US-ALLERGAN-0815667US

PATIENT
  Age: 83 Year
  Sex: Male

DRUGS (5)
  1. COMBIGAN [Suspect]
     Indication: GLAUCOMA
     Dosage: UNK, UNKNOWN
     Route: 047
     Dates: start: 20080101
  2. ASPIRIN [Concomitant]
  3. LIPITOR [Concomitant]
     Dosage: 10 MG, UNK
  4. METOPROLOL SUCCINATE [Concomitant]
     Dosage: 50 MG, UNK
  5. TERAZOSIN HCL [Concomitant]
     Dosage: 1 MG, UNK

REACTIONS (1)
  - BLOOD GLUCOSE INCREASED [None]
